FAERS Safety Report 6324884-5 (Version None)
Quarter: 2009Q3

REPORT INFORMATION
  Report Type: 
  Country: None (occurrence: None)
  Receive Date: 20090824
  Receipt Date: 20090618
  Transmission Date: 20100115
  Serious: No
  Sender: FDA-Public Use
  Company Number: US-ABBOTT-09P-163-0580687-00

PATIENT
  Age: 63 Year
  Sex: Male

DRUGS (9)
  1. NIASPAN [Suspect]
     Indication: HIGH DENSITY LIPOPROTEIN DECREASED
     Dosage: EVERY NIGHT
     Dates: start: 20090101
  2. LIPITOR [Concomitant]
     Indication: DRUG USE FOR UNKNOWN INDICATION
  3. LISINOPRIL [Concomitant]
     Indication: DRUG USE FOR UNKNOWN INDICATION
  4. PLAVIX [Concomitant]
     Indication: DRUG USE FOR UNKNOWN INDICATION
  5. COREG [Concomitant]
     Indication: DRUG USE FOR UNKNOWN INDICATION
  6. METFORMIN HCL [Concomitant]
     Indication: DRUG USE FOR UNKNOWN INDICATION
  7. ACTOS [Concomitant]
     Indication: DRUG USE FOR UNKNOWN INDICATION
  8. CINNAMON [Concomitant]
     Indication: DRUG USE FOR UNKNOWN INDICATION
  9. ASPIRIN [Concomitant]
     Indication: DRUG USE FOR UNKNOWN INDICATION
     Dosage: 81 MILLIGRAMS X 2

REACTIONS (2)
  - FATIGUE [None]
  - FEELING HOT [None]
